FAERS Safety Report 9341845 (Version 6)
Quarter: 2015Q2

REPORT INFORMATION
  Report Type: Spontaneous
  Country: NO (occurrence: NO)
  Receive Date: 20130611
  Receipt Date: 20150608
  Transmission Date: 20150821
  Serious: Yes (Death, Life-Threatening, Hospitalization, Disabling, Other)
  Sender: FDA-Public Use
  Company Number: NO-BIOGENIDEC-2013BI049376

PATIENT
  Age: 48 Year
  Sex: Female

DRUGS (2)
  1. TRISEKVENS [Concomitant]
     Active Substance: ETHINYL ESTRADIOL\NORETHINDRONE
  2. TYSABRI [Suspect]
     Active Substance: NATALIZUMAB
     Indication: MULTIPLE SCLEROSIS
     Route: 042
     Dates: start: 200701, end: 20130418

REACTIONS (3)
  - Progressive multifocal leukoencephalopathy [Fatal]
  - Immune reconstitution inflammatory syndrome [Unknown]
  - Multiple sclerosis [Fatal]

NARRATIVE: CASE EVENT DATE: 20130514
